FAERS Safety Report 9124574 (Version 1)
Quarter: 2013Q1

REPORT INFORMATION
  Report Type: Spontaneous
  Country: US (occurrence: US)
  Receive Date: 20130116
  Receipt Date: 20130116
  Transmission Date: 20140127
  Serious: Yes (Other)
  Sender: FDA-Public Use
  Company Number: US-009507513-1301USA004025

PATIENT
  Age: 36 Year
  Sex: Female

DRUGS (4)
  1. SINGULAIR [Suspect]
     Indication: PRODUCT USED FOR UNKNOWN INDICATION
  2. MEDROL [Suspect]
     Indication: ASTHMA
  3. SYMBICORT [Suspect]
     Dosage: 160/4.5, UNK
  4. XOLAIR [Suspect]
     Route: 058

REACTIONS (3)
  - Stillbirth [Unknown]
  - Gestational diabetes [Unknown]
  - Diabetes mellitus [Unknown]
